FAERS Safety Report 7754508-1 (Version None)
Quarter: 2011Q3

REPORT INFORMATION
  Report Type: 
  Country: None (occurrence: None)
  Receive Date: 20110915
  Receipt Date: 20110914
  Transmission Date: 20111222
  Serious: Yes (Other)
  Sender: FDA-Public Use
  Company Number: US-PFIZER INC-2011140989

PATIENT
  Sex: Female
  Weight: 60 kg

DRUGS (26)
  1. FEMHRT [Concomitant]
     Indication: HORMONE THERAPY
     Dosage: 0.5 MG, UNK
  2. DURAGESIC-100 [Concomitant]
     Indication: PAIN
     Dosage: 75 MG, UNK
     Route: 062
  3. SIMVASTATIN [Concomitant]
     Dosage: 80 MG, 1X/DAY
  4. TRAZODONE [Concomitant]
     Dosage: UNK
  5. OXYCODONE [Concomitant]
     Indication: PAIN
     Dosage: 10/3.25 MG 2 TABLETS AS NEEDED
  6. PRILOSEC DR [Concomitant]
     Dosage: 40 MG, 2X/DAY
  7. ARICEPT [Concomitant]
     Indication: SLEEP DISORDER
     Dosage: 5 MG, 1X/DAY AT NIGHT
  8. ZOLOFT [Suspect]
     Indication: DEPRESSION
     Dosage: UNK
  9. EFFEXOR XR [Suspect]
     Dosage: 150 MG, 1X/DAY
     Dates: start: 20110617
  10. ASPIRIN [Concomitant]
     Dosage: 81 MG, 1X/DAY
  11. CHANTIX [Suspect]
     Dosage: 1 MG, 2X/DAY
     Route: 048
     Dates: start: 20110101, end: 20110901
  12. KLONOPIN [Concomitant]
     Dosage: 2 MG, 1X/DAY AT NIGHT
  13. KLONOPIN [Concomitant]
     Dosage: UNK
  14. TRAZODONE [Concomitant]
     Indication: SLEEP DISORDER
     Dosage: 150 MG, 1X/DAY AT NIGHT
  15. GABAPENTIN [Concomitant]
     Dosage: 300 MG, 1X/DAY
  16. CALCIMAX [Suspect]
     Indication: WEIGHT DECREASED
     Dosage: UNK
  17. VITAMIN B COMPLEX CAP [Concomitant]
     Dosage: UNK
  18. GEMFIBROZIL [Concomitant]
     Dosage: 600 MG, 2X/DAY
  19. TOPAMAX [Concomitant]
     Indication: CONVULSION
     Dosage: 200 MG, 2X/DAY
  20. TOPAMAX [Concomitant]
     Indication: HEADACHE
  21. CHANTIX [Suspect]
     Indication: SMOKING CESSATION THERAPY
     Dosage: 0.5 MG, 1X/DAY
     Route: 048
     Dates: start: 20110603, end: 20110101
  22. SEROQUEL [Suspect]
  23. OXYCODONE [Concomitant]
     Dosage: UNK, AS NEEDED
  24. EFFEXOR XR [Suspect]
     Indication: BIPOLAR DISORDER
     Dosage: 75 MG, 1X/DAY
     Route: 048
     Dates: end: 20110616
  25. PRILOSEC DR [Concomitant]
     Dosage: UNK
  26. LEVOTHYROXINE [Concomitant]
     Dosage: 125 MG, 1X/DAY

REACTIONS (5)
  - HYPOTHYROIDISM [None]
  - DEPRESSED MOOD [None]
  - BIPOLAR DISORDER [None]
  - ANGER [None]
  - SUICIDAL BEHAVIOUR [None]
